FAERS Safety Report 19630179 (Version 1)
Quarter: 2021Q3

REPORT INFORMATION
  Report Type: Spontaneous
  Country: GB (occurrence: GB)
  Receive Date: 20210728
  Receipt Date: 20210728
  Transmission Date: 20211014
  Serious: Yes (Other)
  Sender: FDA-Public Use
  Company Number: GB-PFIZER INC-2021894080

PATIENT
  Age: 22 Year
  Sex: Female
  Weight: 58 kg

DRUGS (3)
  1. FEXOFENADINE [Concomitant]
     Active Substance: FEXOFENADINE HYDROCHLORIDE
     Dosage: 1 DF, 1X/DAY
     Dates: start: 20210628
  2. FLUCONAZOLE. [Suspect]
     Active Substance: FLUCONAZOLE
     Indication: VULVOVAGINAL CANDIDIASIS
     Dosage: 150 MG, DAILY FOR 3 DAYS
  3. LEVEST [ETHINYLESTRADIOL;LEVONORGESTREL] [Concomitant]
     Indication: CONTRACEPTION
     Dosage: TAKE ONE TABLET AT THE SAM...
     Dates: start: 20210528

REACTIONS (1)
  - Palpitations [Recovered/Resolved]
